FAERS Safety Report 5257077-3 (Version None)
Quarter: 2007Q1

REPORT INFORMATION
  Report Type: 
  Country: None (occurrence: None)
  Receive Date: 20070305
  Receipt Date: 20070305
  Transmission Date: 20070707
  Serious: No
  Sender: FDA-Public Use
  Company Number: None

PATIENT
  Age: 30 Year
  Sex: Female
  Weight: 65.7716 kg

DRUGS (1)
  1. ZICAM  NASAL GEL  ZICAM [Suspect]
     Dosage: SQUIRT IN NOSTRIL 2X NASAL  ONE TIME
     Route: 045
     Dates: start: 20061231, end: 20061231

REACTIONS (3)
  - NASAL DISCOMFORT [None]
  - PAIN [None]
  - PAROSMIA [None]
